FAERS Safety Report 5563781-X (Version None)
Quarter: 2007Q4

REPORT INFORMATION
  Report Type: 
  Country: None (occurrence: None)
  Receive Date: 20071217
  Receipt Date: 20070808
  Transmission Date: 20080405
  Serious: No
  Sender: FDA-Public Use
  Company Number: US-ASTRAZENECA-2007UW19173

PATIENT
  Age: 53 Year
  Sex: Female
  Weight: 92.1 kg

DRUGS (4)
  1. CRESTOR [Suspect]
     Indication: DYSLIPIDAEMIA
     Route: 048
  2. HYPERTENSION MEDICATION [Concomitant]
  3. MULTIPLE VITAMIN [Concomitant]
  4. ASPIRIN [Concomitant]

REACTIONS (1)
  - HIGH DENSITY LIPOPROTEIN DECREASED [None]
